FAERS Safety Report 9735254 (Version 1)
Quarter: 2013Q4

REPORT INFORMATION
  Report Type: Spontaneous
  Country: JP (occurrence: None)
  Receive Date: 20131204
  Receipt Date: 20131204
  Transmission Date: 20140711
  Serious: Yes (Other)
  Sender: FDA-Public Use
  Company Number: SYM-2013-13393

PATIENT
  Sex: 0

DRUGS (2)
  1. FLUOROURACIL [Suspect]
     Indication: BREAST CANCER
  2. CYCLOPHOSPHAMIDE (CYCLOPHOSPHAMIDE) (CYCLOPHOSPHAMIDE) [Suspect]
     Indication: BREAST CANCER

REACTIONS (1)
  - Pneumonitis [None]
